FAERS Safety Report 8336267-7 (Version None)
Quarter: 2012Q2

REPORT INFORMATION
  Report Type: 
  Country: None (occurrence: None)
  Receive Date: 20120501
  Receipt Date: 20120417
  Transmission Date: 20120825
  Serious: Yes (Death)
  Sender: FDA-Public Use
  Company Number: B0798723A

PATIENT
  Age: 74 Year
  Sex: Female

DRUGS (2)
  1. PAROXETINE HYDROCHLORIDE [Suspect]
  2. FENTANYL [Suspect]
     Dosage: TRANSDERMAL
     Route: 062

REACTIONS (1)
  - SEROTONIN SYNDROME [None]
